FAERS Safety Report 9484756 (Version 2)
Quarter: 2013Q4

REPORT INFORMATION
  Report Type: Spontaneous
  Country: US (occurrence: US)
  Receive Date: 20130828
  Receipt Date: 20131004
  Transmission Date: 20140711
  Serious: Yes (Hospitalization)
  Sender: FDA-Public Use
  Company Number: US-GLAXOSMITHKLINE-A1038947A

PATIENT
  Age: 71 Year
  Sex: Female

DRUGS (6)
  1. VENTOLIN HFA [Suspect]
     Indication: ASTHMA
     Dosage: 2PUFF AS REQUIRED
     Route: 055
     Dates: start: 201212
  2. PRAVASTATIN [Concomitant]
  3. PANTOPRAZOLE [Concomitant]
  4. METOPROLOL TARTRATE [Concomitant]
  5. LISINOPRIL [Concomitant]
  6. CLOPIDOGREL [Concomitant]

REACTIONS (5)
  - Ulcer haemorrhage [Recovered/Resolved]
  - Pneumonia [Recovered/Resolved]
  - Lung disorder [Recovered/Resolved]
  - Bronchitis [Recovered/Resolved]
  - Overdose [Recovered/Resolved]
